FAERS Safety Report 8196190-8 (Version None)
Quarter: 2012Q1

REPORT INFORMATION
  Report Type: 
  Country: None (occurrence: None)
  Receive Date: 20120306
  Receipt Date: 20120227
  Transmission Date: 20120608
  Serious: Yes (Death)
  Sender: FDA-Public Use
  Company Number: AUR-APL-2012-00883

PATIENT
  Age: 72 Year
  Sex: Male

DRUGS (7)
  1. PANTOPRAZOLE [Suspect]
     Indication: HIATUS HERNIA
     Dosage: (20 MG, 1 D), ORAL
     Route: 048
  2. HYDROCORTONE [Suspect]
     Indication: RHEUMATOID ARTHRITIS
     Dosage: (20 MG), ORAL
     Route: 048
     Dates: end: 20120103
  3. METFORMIN HCL [Suspect]
     Indication: PRODUCT USED FOR UNKNOWN INDICATION
     Dosage: (2 DOSAGE FORMS), ORAL
     Route: 048
  4. COLECALCIFEROL (COLECALCIFEROL) [Suspect]
     Indication: PRODUCT USED FOR UNKNOWN INDICATION
     Dosage: (1 DOSAGE FORMS), ORAL
     Route: 048
  5. ACTONEL [Suspect]
     Indication: OSTEOPOROSIS
     Dosage: (1 DOSAGE FORMS, 1 WK), ORAL
     Route: 048
  6. ORENCIA [Suspect]
     Indication: RHEUMATOID ARTHRITIS
     Dosage: (1 DOSAGE FORMS, 1 M), INTRAVENOUS
     Route: 042
     Dates: start: 20100112, end: 20111001
  7. IRBESARTAN [Suspect]
     Indication: HYPERTENSION
     Dosage: (150 MG), ORAL
     Route: 048

REACTIONS (19)
  - GENERAL PHYSICAL HEALTH DETERIORATION [None]
  - BLOOD CREATININE INCREASED [None]
  - CARDIO-RESPIRATORY ARREST [None]
  - BRADYPNOEA [None]
  - HEPATOMEGALY [None]
  - SPLENOMEGALY [None]
  - SHOCK [None]
  - CYTOLYTIC HEPATITIS [None]
  - LIVER DISORDER [None]
  - CHOLANGITIS [None]
  - CONDITION AGGRAVATED [None]
  - HEPATIC NEOPLASM [None]
  - ASCITES [None]
  - DECREASED APPETITE [None]
  - RENAL IMPAIRMENT [None]
  - PULMONARY EMBOLISM [None]
  - CHOLESTASIS [None]
  - BLOOD SODIUM DECREASED [None]
  - BRADYCARDIA [None]
